FAERS Safety Report 8072789-4 (Version None)
Quarter: 2012Q1

REPORT INFORMATION
  Report Type: 
  Country: None (occurrence: None)
  Receive Date: 20120126
  Receipt Date: 20120113
  Transmission Date: 20120608
  Serious: Yes (Life-Threatening)
  Sender: FDA-Public Use
  Company Number: DE-TEVA-317674GER

PATIENT
  Sex: Female
  Weight: 57 kg

DRUGS (3)
  1. DOXYCYCLINE [Suspect]
     Indication: BORRELIA INFECTION
     Dosage: 200 MILLIGRAM;
     Route: 048
     Dates: start: 20110929, end: 20111025
  2. KATADOLON S LONG [Concomitant]
     Indication: SPINAL DISORDER
     Dosage: 1 DOSAGE FORMS;
     Route: 048
     Dates: start: 20110908, end: 20111231
  3. IBUPROFEN [Concomitant]
     Indication: NECK PAIN
     Route: 048
     Dates: start: 20100101, end: 20120108

REACTIONS (3)
  - HEPATIC ENZYME INCREASED [None]
  - ASTHENIA [None]
  - MALAISE [None]
